FAERS Safety Report 6092250-6 (Version None)
Quarter: 2009Q1

REPORT INFORMATION
  Report Type: 
  Country: None (occurrence: None)
  Receive Date: 20090225
  Receipt Date: 20090220
  Transmission Date: 20090719
  Serious: Yes (Hospitalization)
  Sender: FDA-Public Use
  Company Number: A0769537A

PATIENT
  Sex: Female

DRUGS (10)
  1. WELLBUTRIN XL [Suspect]
     Indication: DEPRESSION
     Dosage: 300MG IN THE MORNING
     Route: 048
     Dates: start: 20070101, end: 20090218
  2. BUPROPION HYDROCHLORIDE [Suspect]
     Indication: DEPRESSION
     Dosage: 600MG IN THE MORNING
     Route: 048
  3. SYNTHROID [Concomitant]
  4. LOVASTATIN [Concomitant]
  5. ADDERALL 10 [Concomitant]
  6. OMEPRAZOLE [Concomitant]
  7. KLONOPIN [Concomitant]
  8. TRAZODONE HCL [Concomitant]
  9. ZYPREXA [Concomitant]
  10. PREDNISONE [Concomitant]

REACTIONS (3)
  - DRUG INEFFECTIVE [None]
  - OVERDOSE [None]
  - SUICIDAL IDEATION [None]
